FAERS Safety Report 8266481-0 (Version None)
Quarter: 2012Q2

REPORT INFORMATION
  Report Type: 
  Country: None (occurrence: None)
  Receive Date: 20120406
  Receipt Date: 20120329
  Transmission Date: 20120825
  Serious: Yes (Other)
  Sender: FDA-Public Use
  Company Number: HU-ASTRAZENECA-2012SE21658

PATIENT
  Age: 75 Year
  Sex: Female

DRUGS (1)
  1. VIMOVO [Suspect]
     Indication: OSTEOARTHRITIS
     Dosage: 500 MG/ 20 MG, BID
     Route: 048

REACTIONS (2)
  - VERTIGO [None]
  - FEELING ABNORMAL [None]
